FAERS Safety Report 5524338-X (Version None)
Quarter: 2007Q4

REPORT INFORMATION
  Report Type: 
  Country: None (occurrence: None)
  Receive Date: 20071121
  Receipt Date: 20071112
  Transmission Date: 20080405
  Serious: Yes (Hospitalization)
  Sender: FDA-Public Use
  Company Number: DE-PFIZER INC-2007095787

PATIENT
  Age: 28 Year
  Sex: Female

DRUGS (3)
  1. ZELDOX (CAPSULES) [Suspect]
     Indication: DEPRESSION
     Dosage: DAILY DOSE:120MG-TEXT:TDD:120MG
     Route: 048
     Dates: start: 20070623, end: 20070822
  2. CIPRAMIL [Suspect]
     Indication: DEPRESSION
     Dosage: DAILY DOSE:80MG-TEXT:TDD:80MG
     Route: 048
  3. MELNEURIN [Suspect]
     Dosage: DAILY DOSE:50MG-TEXT:TDD:50MG
     Route: 048

REACTIONS (1)
  - MOVEMENT DISORDER [None]
